FAERS Safety Report 7516878-9 (Version None)
Quarter: 2011Q2

REPORT INFORMATION
  Report Type: 
  Country: None (occurrence: None)
  Receive Date: 20110601
  Receipt Date: 20110516
  Transmission Date: 20111010
  Serious: No
  Sender: FDA-Public Use
  Company Number: US-B.I. PHARMACEUTICALS,INC./RIDGEFIELD-2011-BP-13261BP

PATIENT
  Age: 31 Year
  Sex: Female

DRUGS (7)
  1. PREVACID [Concomitant]
     Indication: DYSPEPSIA
     Route: 048
     Dates: start: 20110501, end: 20110501
  2. NEXIUM [Concomitant]
     Indication: DYSPEPSIA
     Route: 048
  3. PREVACID [Concomitant]
     Indication: GASTROOESOPHAGEAL REFLUX DISEASE
  4. NEXIUM [Concomitant]
     Indication: GASTROOESOPHAGEAL REFLUX DISEASE
  5. PRILOSEC [Concomitant]
     Indication: GASTROOESOPHAGEAL REFLUX DISEASE
  6. ZANTAC 150 [Suspect]
     Indication: DYSPEPSIA
     Dosage: 150 MG
     Route: 048
     Dates: start: 20110516, end: 20110516
  7. PRILOSEC [Concomitant]
     Indication: DYSPEPSIA
     Route: 048
     Dates: start: 20110501, end: 20110501

REACTIONS (2)
  - PRURITUS [None]
  - ANORECTAL DISCOMFORT [None]
